FAERS Safety Report 12216550 (Version 1)
Quarter: 2016Q1

REPORT INFORMATION
  Report Type: Report from Study
  Country: CA (occurrence: CA)
  Receive Date: 20160329
  Receipt Date: 20160329
  Transmission Date: 20160526
  Serious: Yes (Other)
  Sender: FDA-Public Use
  Company Number: CA-ROCHE-ITM201502IM010698

PATIENT
  Age: 70 Year
  Sex: Female

DRUGS (12)
  1. ESBRIET [Suspect]
     Active Substance: PIRFENIDONE
     Dosage: 2403 MG
     Route: 048
     Dates: start: 20150219
  2. ESBRIET [Suspect]
     Active Substance: PIRFENIDONE
     Route: 048
     Dates: start: 20150429
  3. VITAMIN B12 [Concomitant]
     Active Substance: CYANOCOBALAMIN
     Dosage: MONTHLY
     Route: 065
  4. ESBRIET [Suspect]
     Active Substance: PIRFENIDONE
     Route: 048
     Dates: start: 20150212
  5. ESBRIET [Suspect]
     Active Substance: PIRFENIDONE
     Indication: IDIOPATHIC PULMONARY FIBROSIS
     Route: 048
     Dates: start: 20150205
  6. ESBRIET [Suspect]
     Active Substance: PIRFENIDONE
     Route: 048
     Dates: start: 20150224
  7. TECTA [Concomitant]
     Active Substance: PANTOPRAZOLE MAGNESIUM
     Route: 065
  8. ROSUVASTATIN [Concomitant]
     Active Substance: ROSUVASTATIN
  9. ESBRIET [Suspect]
     Active Substance: PIRFENIDONE
     Dosage: 534 MG - 534 MG - 801
     Route: 048
     Dates: start: 20150319
  10. ELTROXIN [Concomitant]
     Active Substance: LEVOTHYROXINE
  11. ELAVIL [Concomitant]
     Active Substance: AMITRIPTYLINE HYDROCHLORIDE
  12. TECTA [Concomitant]
     Active Substance: PANTOPRAZOLE MAGNESIUM
     Route: 065

REACTIONS (8)
  - Neoplasm [Not Recovered/Not Resolved]
  - Nausea [Recovering/Resolving]
  - Bladder disorder [Unknown]
  - Dyspepsia [Recovering/Resolving]
  - Fatigue [Not Recovered/Not Resolved]
  - Forced vital capacity decreased [Unknown]
  - Pulmonary function test increased [Unknown]
  - Functional residual capacity decreased [Unknown]

NARRATIVE: CASE EVENT DATE: 20150219
